FAERS Safety Report 9581231 (Version 1)
Quarter: 2013Q4

REPORT INFORMATION
  Report Type: Spontaneous
  Country: IE (occurrence: IE)
  Receive Date: 20131002
  Receipt Date: 20131002
  Transmission Date: 20140711
  Serious: Yes (Other)
  Sender: FDA-Public Use
  Company Number: PHHY2013IE106654

PATIENT
  Age: 36 Year
  Sex: Male

DRUGS (6)
  1. ARIPIPRAZOLE [Suspect]
  2. HALOPERIDOL [Suspect]
     Dosage: 2.5 MG, BID
  3. HALOPERIDOL [Suspect]
     Dosage: STAT
  4. OLANZAPINE [Concomitant]
     Dosage: UNK UKN, UNK
  5. OLANZAPINE [Concomitant]
     Dosage: UNK DOSE INCREASED
  6. DIAZEPAM [Concomitant]

REACTIONS (23)
  - General physical health deterioration [Recovering/Resolving]
  - Schizophrenia, catatonic type [Recovering/Resolving]
  - Suicidal ideation [Recovering/Resolving]
  - Neuroleptic malignant syndrome [Recovering/Resolving]
  - Stereotypy [Recovering/Resolving]
  - Hallucination, auditory [Recovering/Resolving]
  - Anxiety [Recovering/Resolving]
  - Neologism [Recovering/Resolving]
  - Agitation [Recovering/Resolving]
  - Tearfulness [Recovering/Resolving]
  - Urinary incontinence [Recovering/Resolving]
  - Echolalia [Recovering/Resolving]
  - Tachycardia [Recovering/Resolving]
  - Staring [Recovering/Resolving]
  - Mobility decreased [Recovering/Resolving]
  - Speech disorder [Recovering/Resolving]
  - Hyperthermia [Recovering/Resolving]
  - Hyperhidrosis [Recovering/Resolving]
  - Tachypnoea [Recovering/Resolving]
  - Labile blood pressure [Recovering/Resolving]
  - Muscle rigidity [Recovering/Resolving]
  - Trance [Recovering/Resolving]
  - Hypertension [Recovering/Resolving]
